FAERS Safety Report 23981671 (Version 2)
Quarter: 2025Q1

REPORT INFORMATION
  Report Type: Spontaneous
  Country: US (occurrence: US)
  Receive Date: 20240617
  Receipt Date: 20250307
  Transmission Date: 20250408
  Serious: No
  Sender: TEVA
  Company Number: US-TEVA-VS-3208235

PATIENT
  Age: 77 Year
  Sex: Male

DRUGS (22)
  1. DOXEPIN [Suspect]
     Active Substance: DOXEPIN
     Indication: Product used for unknown indication
     Route: 065
  2. AUSTEDO [Concomitant]
     Active Substance: DEUTETRABENAZINE
     Indication: Dyskinesia
     Route: 048
  3. ACETAZOLAMIDE [Concomitant]
     Active Substance: ACETAZOLAMIDE
  4. AMLODIPINE [Concomitant]
     Active Substance: AMLODIPINE BESYLATE
  5. ATORVASTATIN [Concomitant]
     Active Substance: ATORVASTATIN
  6. CLOPIDOGREL [Concomitant]
     Active Substance: CLOPIDOGREL BISULFATE
  7. DONEPEZIL HC [Concomitant]
  8. ESCITALOPRAM [Concomitant]
     Active Substance: ESCITALOPRAM OXALATE
  9. FLUOXETINE H [Concomitant]
  10. FLUTICASONE [Concomitant]
     Active Substance: FLUTICASONE
  11. GABAPENTIN [Concomitant]
     Active Substance: GABAPENTIN
  12. HYDROCODONE [Concomitant]
     Active Substance: HYDROCODONE
  13. HYDROXYCHLOROQUINE [Concomitant]
     Active Substance: HYDROXYCHLOROQUINE
  14. JANUVIA [Concomitant]
     Active Substance: SITAGLIPTIN PHOSPHATE
  15. LEVOCETIRIZINE [Concomitant]
     Active Substance: LEVOCETIRIZINE
  16. METHOCARBAMO [Concomitant]
  17. METOPROLOL [Concomitant]
     Active Substance: METOPROLOL
  18. METOPROLOL [Concomitant]
     Active Substance: METOPROLOL
  19. PRIMIDONE [Concomitant]
     Active Substance: PRIMIDONE
  20. QUETIAPINE [Concomitant]
     Active Substance: QUETIAPINE
  21. QUVIVIQ [Concomitant]
     Active Substance: DARIDOREXANT
  22. RAMELTEON [Concomitant]
     Active Substance: RAMELTEON

REACTIONS (1)
  - Dry mouth [Unknown]
